FAERS Safety Report 11344473 (Version 1)
Quarter: 2015Q3

REPORT INFORMATION
  Report Type: Spontaneous
  Country: US (occurrence: US)
  Receive Date: 20150806
  Receipt Date: 20150806
  Transmission Date: 20151125
  Serious: No
  Sender: FDA-Public Use
  Company Number: US-BIOGENIDEC-2015BI108961

PATIENT

DRUGS (1)
  1. TYSABRI [Suspect]
     Active Substance: NATALIZUMAB
     Indication: PRODUCT USED FOR UNKNOWN INDICATION

REACTIONS (6)
  - Sensory disturbance [Unknown]
  - Swollen tongue [Unknown]
  - Spinal pain [Unknown]
  - Emergency care [Unknown]
  - Adverse event [Unknown]
  - Spinal disorder [Unknown]
